FAERS Safety Report 8848242 (Version 1)
Quarter: 2012Q4

REPORT INFORMATION
  Report Type: 
  Country: US (occurrence: US)
  Receive Date: 20121018
  Receipt Date: 20121018
  Transmission Date: 20130627
  Serious: Yes (Other)
  Sender: FDA-Public Use
  Company Number: US-ROCHE-1139622

PATIENT
  Sex: Female

DRUGS (8)
  1. PROTROPIN [Suspect]
     Indication: GROWTH HORMONE DEFICIENCY
     Dosage: diluted with 2 ml
     Route: 058
     Dates: start: 19930713
  2. PROTROPIN [Suspect]
     Indication: HYPOTHALAMO-PITUITARY DISORDER
     Dosage: 0.33 cc
     Route: 058
  3. PROTROPIN [Suspect]
     Indication: NOONAN SYNDROME
  4. ALLERGY SHOT [Concomitant]
  5. GUAIFED [Concomitant]
     Dosage: 30 mg/5 ml syrup
     Route: 065
  6. CLARITIN [Concomitant]
     Indication: HYPERSENSITIVITY
     Route: 065
  7. CORTISPORIN OTIC [Concomitant]
     Dosage: 2 3 drops to be applied to ears
     Route: 065
  8. COLACE [Concomitant]
     Route: 048

REACTIONS (10)
  - Dysphemia [Unknown]
  - Dizziness [Unknown]
  - Malaise [Unknown]
  - Hypersensitivity [Unknown]
  - Sinusitis [Unknown]
  - Constipation [Unknown]
  - Headache [Unknown]
  - Abdominal symptom [Unknown]
  - Bone disorder [Unknown]
  - Pruritus [Unknown]
